FAERS Safety Report 25654894 (Version 1)
Quarter: 2025Q3

REPORT INFORMATION
  Report Type: Report from Study
  Country: US (occurrence: US)
  Receive Date: 20250807
  Receipt Date: 20250807
  Transmission Date: 20251021
  Serious: Yes (Death)
  Sender: AMGEN
  Company Number: US-AMGEN-USASP2025156816

PATIENT
  Sex: Male

DRUGS (1)
  1. TARLATAMAB [Suspect]
     Active Substance: TARLATAMAB
     Indication: Prostate cancer
     Route: 065

REACTIONS (2)
  - Death [Fatal]
  - Therapy partial responder [Unknown]
